FAERS Safety Report 8237274-5 (Version None)
Quarter: 2012Q1

REPORT INFORMATION
  Report Type: 
  Country: None (occurrence: None)
  Receive Date: 20120327
  Receipt Date: 20120327
  Transmission Date: 20120608
  Serious: No
  Sender: FDA-Public Use
  Company Number: None

PATIENT
  Sex: Female
  Weight: 58.967 kg

DRUGS (2)
  1. VYTORIN [Concomitant]
     Indication: BLOOD CHOLESTEROL INCREASED
     Dosage: 10-20MG
     Dates: start: 20050101, end: 20111215
  2. LIPITOR [Suspect]
     Indication: BLOOD CHOLESTEROL INCREASED
     Dates: start: 20000101, end: 20050101

REACTIONS (3)
  - MUSCULAR WEAKNESS [None]
  - BLOOD CREATINE PHOSPHOKINASE INCREASED [None]
  - MOVEMENT DISORDER [None]
